FAERS Safety Report 11757898 (Version 1)
Quarter: 2020Q3

REPORT INFORMATION
  Report Type: Report from Study
  Country: HU (occurrence: HU)
  Receive Date: 20151120
  Receipt Date: 20151120
  Transmission Date: 20201104
  Serious: Yes (Other)
  Sender: FDA-Public Use
  Company Number: HU-JNJFOC-20151118718

PATIENT
  Age: 71 Year
  Sex: Male
  Weight: 71 kg

DRUGS (4)
  1. BLINDED; GOLIMUMA [Suspect]
     Active Substance: GOLIMUMAB
     Indication: PSORIATIC ARTHROPATHY
     Route: 042
     Dates: start: 20151103, end: 20151103
  2. MEDROL [Concomitant]
     Active Substance: METHYLPREDNISOLONE
     Route: 048
     Dates: start: 20150108
  3. PLACEBO [Suspect]
     Active Substance: UNSPECIFIED INGREDIENT
     Indication: PSORIATIC ARTHROPATHY
     Route: 042
     Dates: start: 20151103, end: 20151103
  4. BLINDED; GOLIMUMA [Suspect]
     Active Substance: GOLIMUMAB
     Route: 042

REACTIONS (1)
  - Oesophageal neoplasm [Recovering/Resolving]

NARRATIVE: CASE EVENT DATE: 20151103
